FAERS Safety Report 8247812-4 (Version None)
Quarter: 2012Q1

REPORT INFORMATION
  Report Type: 
  Country: None (occurrence: None)
  Receive Date: 20120330
  Receipt Date: 20120322
  Transmission Date: 20120608
  Serious: Yes (Hospitalization)
  Sender: FDA-Public Use
  Company Number: US-BAYER-201024399NA

PATIENT
  Age: 49 Year
  Sex: Female
  Weight: 167.3 kg

DRUGS (13)
  1. YASMIN [Suspect]
     Indication: PRODUCT USED FOR UNKNOWN INDICATION
     Route: 048
  2. EFFEXOR XR [Concomitant]
     Dosage: 150 MG, QD
  3. AMBIEN [Concomitant]
  4. LORTAB [Concomitant]
     Dosage: 7.5 MG, PRN
  5. LASIX [Concomitant]
     Dosage: 40 MG (DAILY DOSE), BID,
  6. PROTONIX [Concomitant]
     Dosage: 40 MG, QD
  7. AZOR [Concomitant]
     Dosage: 10MG/40MG DAILY
  8. TOPROL-XL [Concomitant]
     Dosage: 50 MG (DAILY DOSE), QD,
  9. TOPAMAX [Concomitant]
     Dosage: 100 MG DAILY DOSE, BID
  10. AMBIEN CR [Concomitant]
     Dosage: 12.5 MG, HS
  11. YAZ [Suspect]
     Indication: PREMENSTRUAL SYNDROME
     Dosage: UNK
     Route: 048
     Dates: start: 20081201, end: 20090625
  12. METOPROLOL RETARD [Concomitant]
     Dosage: 50 MG, QD
  13. TREXIMET [Concomitant]
     Indication: MIGRAINE
     Dosage: UNK
     Route: 048
     Dates: start: 20081126, end: 20081230

REACTIONS (4)
  - OEDEMA PERIPHERAL [None]
  - PULMONARY EMBOLISM [None]
  - DYSPNOEA [None]
  - DEEP VEIN THROMBOSIS [None]
